FAERS Safety Report 6028676-6 (Version None)
Quarter: 2009Q1

REPORT INFORMATION
  Report Type: 
  Country: None (occurrence: None)
  Receive Date: 20090102
  Receipt Date: 20081223
  Transmission Date: 20090719
  Serious: Yes (Other)
  Sender: FDA-Public Use
  Company Number: 1000003347

PATIENT
  Age: 70 Year
  Sex: Male

DRUGS (3)
  1. ESCITALOPRAM [Suspect]
     Dosage: 10 MG (10 MG, 1 IN 1 D), ORAL
     Route: 048
     Dates: end: 20081222
  2. ZOLPIDEM [Concomitant]
  3. BROMAZEPAM [Concomitant]

REACTIONS (3)
  - AGRANULOCYTOSIS [None]
  - HAEMOGLOBIN ABNORMAL [None]
  - PANCYTOPENIA [None]
